FAERS Safety Report 15154463 (Version 1)
Quarter: 2018Q3

REPORT INFORMATION
  Report Type: Spontaneous
  Country: PL (occurrence: PL)
  Receive Date: 20180717
  Receipt Date: 20180717
  Transmission Date: 20181010
  Serious: Yes (Other)
  Sender: FDA-Public Use
  Company Number: PL-B. BRAUN MEDICAL INC.-2052238

PATIENT
  Age: 31 Year
  Sex: Male
  Weight: 83 kg

DRUGS (2)
  1. BUPIVACAINE HYDROCHLORIDE. [Suspect]
     Active Substance: BUPIVACAINE HYDROCHLORIDE
     Dates: start: 20180202, end: 20180202
  2. LIDOCAINE HYDROCHLORIDE AND DEXTROSE [Suspect]
     Active Substance: DEXTROSE\LIDOCAINE HYDROCHLORIDE
     Indication: ANAESTHESIA
     Dates: start: 20180202, end: 20180202

REACTIONS (4)
  - Psychomotor hyperactivity [Recovered/Resolved]
  - Speech disorder [Recovered/Resolved]
  - Altered state of consciousness [Recovered/Resolved]
  - Tinnitus [Recovered/Resolved]

NARRATIVE: CASE EVENT DATE: 20180202
